FAERS Safety Report 9103876 (Version 2)
Quarter: 2013Q1

REPORT INFORMATION
  Report Type: Spontaneous
  Country: VE (occurrence: VE)
  Receive Date: 20130219
  Receipt Date: 20130322
  Transmission Date: 20140127
  Serious: No
  Sender: FDA-Public Use
  Company Number: VE-PFIZER INC-2013062511

PATIENT
  Age: 81 Year
  Sex: Female

DRUGS (1)
  1. CADUET [Suspect]
     Dosage: 5MG/40MG, 1X/DAY
     Route: 048
     Dates: start: 2010, end: 20130201

REACTIONS (1)
  - Local swelling [Recovered/Resolved]
